FAERS Safety Report 8561321 (Version 3)
Quarter: 2013Q1

REPORT INFORMATION
  Report Type: Spontaneous
  Country: US (occurrence: US)
  Receive Date: 20120514
  Receipt Date: 20130201
  Transmission Date: 20140127
  Serious: Yes (Hospitalization, Other)
  Sender: FDA-Public Use
  Company Number: US-BAYER-2012-046499

PATIENT
  Age: 27 Year
  Sex: Female

DRUGS (18)
  1. YAZ [Suspect]
     Indication: MENSTRUATION IRREGULAR
  2. YAZ [Suspect]
     Indication: METABOLIC SYNDROME
  3. YASMIN [Suspect]
  4. FUROSEMIDE [Concomitant]
     Dosage: 20 MG, BID
  5. LISINOPRIL [Concomitant]
     Dosage: 40 MG, QID
  6. METFORMIN [Concomitant]
     Dosage: 500 MG, QD
  7. METHADONE [Concomitant]
     Dosage: 100 MG, QD
  8. VESICARE [Concomitant]
     Dosage: 10 MG, QD
  9. LEVOTHYROXINE [Concomitant]
     Dosage: 50 MCG/24HR, UNK
  10. LORTAB [Concomitant]
  11. CHANTIX [Concomitant]
  12. HYDROCHLOROTHIAZIDE [Concomitant]
     Indication: BLOOD PRESSURE ABNORMAL
     Dosage: 25 MG, UNK
  13. HYDROCODONE W/ACETAMINOPHEN [Concomitant]
     Dosage: 7.5MG/325 MG; ONE TO TWO TABLETS THREE TIMES DAILY AS NEEDED
     Dates: start: 201107
  14. HYDROCODONE W/ACETAMINOPHEN [Concomitant]
     Dosage: 7.5 MG/500MG;ONE TABLET EVERY 4 HOURS AS NEEDED
     Dates: start: 201107
  15. PHENAZOPYRIDINE [Concomitant]
     Dosage: 200 MG, ONE TABLET EVERY 8 HOURS AS NEEDED
     Dates: start: 201107
  16. BACTRIM DS [Concomitant]
     Dosage: UNK; ONE TABLET A DAY
     Dates: start: 201107
  17. POTASSIUM CHLORIDE [Concomitant]
     Dosage: 10 MEQ, ONE TABLET EVERYDAY
     Dates: start: 201108
  18. GLUCOPHAGE [Concomitant]
     Dosage: UNK
     Dates: start: 20110601

REACTIONS (9)
  - Pulmonary embolism [None]
  - Deep vein thrombosis [Recovered/Resolved]
  - Injury [None]
  - Pain [None]
  - Anxiety [None]
  - Anhedonia [None]
  - Fear [None]
  - Quality of life decreased [None]
  - Emotional distress [None]
